FAERS Safety Report 9655915 (Version 3)
Quarter: 2014Q1

REPORT INFORMATION
  Report Type: Report from Study
  Country: DE (occurrence: DE)
  Receive Date: 20131030
  Receipt Date: 20140124
  Transmission Date: 20141002
  Serious: Yes (Hospitalization)
  Sender: FDA-Public Use
  Company Number: DE-SHIRE-ALL1-2013-07460

PATIENT
  Age: 41 Year
  Sex: Male
  Weight: 84.3 kg

DRUGS (2)
  1. 489 (LISDEXAMFETAMINE DIMESYLATE) [Suspect]
     Indication: BINGE EATING
     Dosage: 50 MG, 1X/DAY:QD
     Route: 048
     Dates: start: 20130911, end: 20131025
  2. 489 (LISDEXAMFETAMINE DIMESYLATE) [Suspect]
     Dosage: UNK UNK, UNKNOWN
     Route: 048
     Dates: start: 20130905, end: 20130910

REACTIONS (1)
  - Tinnitus [Recovered/Resolved]
